FAERS Safety Report 16416044 (Version 4)
Quarter: 2019Q3

REPORT INFORMATION
  Report Type: Spontaneous
  Country: JP (occurrence: JP)
  Receive Date: 20190611
  Receipt Date: 20190731
  Transmission Date: 20191004
  Serious: Yes (Hospitalization, Disabling, Other)
  Sender: FDA-Public Use
  Company Number: JP-JNJFOC-20190606374

PATIENT
  Age: 43 Year
  Sex: Female
  Weight: 43 kg

DRUGS (10)
  1. LEUKERIN [Suspect]
     Active Substance: MERCAPTOPURINE
     Route: 048
     Dates: start: 201901, end: 201905
  2. PENTASA [Suspect]
     Active Substance: MESALAMINE
     Route: 065
     Dates: start: 20190108, end: 20190115
  3. LIALDA [Suspect]
     Active Substance: MESALAMINE
     Route: 048
     Dates: start: 201812
  4. PENTASA [Suspect]
     Active Substance: MESALAMINE
     Route: 065
     Dates: start: 201812, end: 201812
  5. REMICADE [Suspect]
     Active Substance: INFLIXIMAB
     Indication: COLITIS ULCERATIVE
     Route: 042
     Dates: start: 201503, end: 201503
  6. LEUKERIN [Suspect]
     Active Substance: MERCAPTOPURINE
     Route: 048
     Dates: start: 201810
  7. LEUKERIN [Suspect]
     Active Substance: MERCAPTOPURINE
     Indication: COLITIS ULCERATIVE
     Route: 048
     Dates: start: 201701, end: 201810
  8. IMURAN [Suspect]
     Active Substance: AZATHIOPRINE
     Route: 048
     Dates: start: 20150104
  9. PENTASA [Suspect]
     Active Substance: MESALAMINE
     Route: 065
     Dates: start: 20190116
  10. SIMPONI [Suspect]
     Active Substance: GOLIMUMAB
     Indication: COLITIS ULCERATIVE
     Route: 058
     Dates: start: 20171114

REACTIONS (3)
  - Acute myeloid leukaemia [Not Recovered/Not Resolved]
  - Colitis ulcerative [Unknown]
  - Bone marrow failure [Unknown]

NARRATIVE: CASE EVENT DATE: 201810
